FAERS Safety Report 14488157 (Version 1)
Quarter: 2018Q1

REPORT INFORMATION
  Report Type: Spontaneous
  Country: US (occurrence: US)
  Receive Date: 20180205
  Receipt Date: 20180205
  Transmission Date: 20180509
  Serious: No
  Sender: FDA-Public Use
  Company Number: US-MYLANLABS-2018M1008681

PATIENT
  Sex: Female
  Weight: 60 kg

DRUGS (3)
  1. LEVOTHYROXINE. [Suspect]
     Active Substance: LEVOTHYROXINE
     Dosage: 125 ?G, UNK
     Route: 048
     Dates: end: 20180114
  2. LEVOTHYROXINE. [Suspect]
     Active Substance: LEVOTHYROXINE
     Dosage: 112 ?G, UNK
     Route: 048
     Dates: start: 20180115
  3. LEVOTHYROXINE. [Suspect]
     Active Substance: LEVOTHYROXINE
     Indication: THYROIDECTOMY
     Dosage: 135 ?G, UNK
     Route: 048

REACTIONS (6)
  - Tremor [Not Recovered/Not Resolved]
  - Weight decreased [Not Recovered/Not Resolved]
  - Malaise [Not Recovered/Not Resolved]
  - Heart rate increased [Not Recovered/Not Resolved]
  - Dyspnoea [Unknown]
  - Nausea [Not Recovered/Not Resolved]
